FAERS Safety Report 5411759-9 (Version None)
Quarter: 2007Q3

REPORT INFORMATION
  Report Type: 
  Country: None (occurrence: None)
  Receive Date: 20070813
  Receipt Date: 20070806
  Transmission Date: 20080115
  Serious: Yes (Other)
  Sender: FDA-Public Use
  Company Number: PHEH2007US05082

PATIENT
  Age: 54 Year
  Sex: Female

DRUGS (25)
  1. ZELNORM [Suspect]
     Indication: DIARRHOEA
     Dosage: 6 MG, QD
     Route: 048
     Dates: start: 20061006, end: 20061010
  2. NABUMETONE [Concomitant]
     Dosage: 500 MG, BID
     Route: 048
  3. DURAGESIC-100 [Concomitant]
     Dosage: 100MCG/HR Q27H
     Route: 062
  4. DIOVAN [Concomitant]
     Dosage: 80 MG, QD
     Route: 048
  5. FUROSEMIDE [Concomitant]
     Dosage: 40 MG, QD
     Route: 048
  6. K-DUR 10 [Concomitant]
     Dosage: 20 MEQ, QD
     Route: 048
  7. GLIMEPIRIDE [Concomitant]
     Dosage: 2 MG, QD
     Route: 048
  8. NOVOLIN R [Concomitant]
     Dosage: UNK, TID
     Route: 058
  9. SINGULAIR [Concomitant]
     Dosage: 10 MG, QD
     Route: 048
  10. ZYRTEC-D [Concomitant]
     Dosage: 10 MG, QD
     Route: 048
  11. NEXIUM [Concomitant]
     Dosage: 40 MG, QD
     Route: 048
  12. FOSAMAX [Concomitant]
     Dosage: 70 MG, QD
     Route: 048
  13. CLONAZEPAM [Concomitant]
     Dosage: 0.5MG AM AND 1MG PM
     Route: 048
  14. PHENYTOIN [Concomitant]
     Dosage: 200 MG, QD
  15. TRAMADOL HCL [Concomitant]
     Dosage: 37.5/32 MG 1-2 TAB Q6H
     Route: 048
  16. SKELAXIN [Concomitant]
     Dosage: 800 MG, TID PRN SPASMS
     Route: 048
  17. ARTHROTEC [Concomitant]
     Dosage: 50 MG, BID
     Route: 048
  18. SPIRONOLACTONE W/ HYDROCHLOROTHIAZIDE [Concomitant]
     Dosage: 25/25 MG , QD
     Route: 048
  19. ZYRTEC [Concomitant]
     Dosage: 10 MG, QD
     Route: 048
  20. ECOTRIN [Concomitant]
     Dosage: 325 MG, QD
     Route: 048
  21. LOMOTIL [Concomitant]
     Dosage: 2 TAB AT 1ST THE 1 TAB AFTER EVERY STOOL
     Route: 048
  22. HYDROXYZINE [Concomitant]
     Dosage: 25 MG, QID BEFORE MEALS
     Route: 048
  23. DITROPAN XL [Concomitant]
     Dosage: 10 MG, QD
     Route: 048
  24. VITAMIN A [Concomitant]
     Dosage: 1 TAB, QD
     Route: 048
  25. PROMETHAZINE [Concomitant]
     Dosage: 25 MG, TID PRN NAUSEA AND VOMITING
     Route: 048

REACTIONS (6)
  - BLOOD POTASSIUM DECREASED [None]
  - CHEST PAIN [None]
  - DIARRHOEA [None]
  - EXTRASYSTOLES [None]
  - MYOCARDIAL INFARCTION [None]
  - THROAT IRRITATION [None]
